FAERS Safety Report 26034329 (Version 2)
Quarter: 2025Q4

REPORT INFORMATION
  Report Type: Spontaneous
  Country: US (occurrence: US)
  Receive Date: 20251112
  Receipt Date: 20251229
  Transmission Date: 20260117
  Serious: Yes (Other)
  Sender: CSL BEHRING
  Company Number: US-BEH-2025224171

PATIENT
  Age: 51 Year
  Sex: Female

DRUGS (4)
  1. ANDEMBRY [Suspect]
     Active Substance: GARADACIMAB-GXII
     Indication: Hereditary angioedema
     Dosage: 400 MG, QD
     Route: 058
     Dates: start: 202510
  2. ANDEMBRY [Suspect]
     Active Substance: GARADACIMAB-GXII
     Indication: Prophylaxis
     Dosage: 200 MG, QMT
     Route: 058
     Dates: start: 202510
  3. RUCONEST [Concomitant]
     Active Substance: CONESTAT ALFA
  4. EKTERLY [Concomitant]
     Active Substance: SEBETRALSTAT

REACTIONS (5)
  - Hereditary angioedema [Not Recovered/Not Resolved]
  - Hereditary angioedema [Not Recovered/Not Resolved]
  - Hereditary angioedema [Unknown]
  - Hereditary angioedema [Unknown]
  - Hereditary angioedema [Unknown]

NARRATIVE: CASE EVENT DATE: 20251027
